FAERS Safety Report 9292880 (Version 1)
Quarter: 2013Q2

REPORT INFORMATION
  Report Type: Spontaneous
  Country: CH (occurrence: CH)
  Receive Date: 20130516
  Receipt Date: 20130516
  Transmission Date: 20140414
  Serious: Yes (Other)
  Sender: FDA-Public Use
  Company Number: CH-JNJFOC-20130503913

PATIENT
  Age: 52 Year
  Sex: Female

DRUGS (2)
  1. TOPAMAX [Suspect]
     Indication: CLUSTER HEADACHE
     Route: 048
  2. GAMMA-HYDROXYBUTYRATE [Suspect]
     Indication: CLUSTER HEADACHE
     Dosage: TWICE-NIGHTLY AT 2300 AND 0300 HOURS
     Route: 065

REACTIONS (8)
  - Coma [Recovered/Resolved]
  - Headache [Unknown]
  - Drug interaction [Unknown]
  - Confusional state [Unknown]
  - Drug level increased [Unknown]
  - Myoclonus [Unknown]
  - Miosis [Unknown]
  - Cluster headache [None]
